FAERS Safety Report 23342308 (Version 2)
Quarter: 2024Q1

REPORT INFORMATION
  Report Type: Spontaneous
  Country: FR (occurrence: None)
  Receive Date: 20231227
  Receipt Date: 20240104
  Transmission Date: 20240409
  Serious: Yes (Other)
  Sender: FDA-Public Use
  Company Number: 2023A293869

PATIENT
  Age: 35 Week
  Sex: Male

DRUGS (2)
  1. BEYFORTUS [Suspect]
     Active Substance: NIRSEVIMAB-ALIP
     Indication: Prophylaxis
     Dosage: UNK
     Route: 030
     Dates: start: 20231010, end: 20231010
  2. VITAMIN D NOS [Concomitant]
     Active Substance: VITAMIN D NOS

REACTIONS (3)
  - Respiratory syncytial virus bronchiolitis [Unknown]
  - Cough [Unknown]
  - Childhood asthma [Unknown]

NARRATIVE: CASE EVENT DATE: 20231127
